FAERS Safety Report 6379981-5 (Version None)
Quarter: 2009Q3

REPORT INFORMATION
  Report Type: 
  Country: None (occurrence: None)
  Receive Date: 20090928
  Receipt Date: 20090915
  Transmission Date: 20100115
  Serious: Yes (Hospitalization)
  Sender: FDA-Public Use
  Company Number: CZ-B.I. PHARMACEUTICALS,INC./RIDGEFIELD-2009-DE-05190GD

PATIENT
  Age: 54 Year
  Sex: Male

DRUGS (6)
  1. PRAMIPEXOLE [Suspect]
     Indication: PARKINSON'S DISEASE
     Dosage: 3.15 MG
     Route: 048
     Dates: start: 20080301, end: 20080701
  2. LEVODOPA [Concomitant]
     Indication: PARKINSON'S DISEASE
     Dosage: 1000 MG
     Route: 048
     Dates: start: 20000101
  3. CITALOPRAM [Concomitant]
     Indication: DEPRESSION
     Dosage: 20 MG
     Route: 048
  4. ALPRAZOLAM [Concomitant]
     Indication: DEPRESSION
     Dosage: 0.5 MG
     Route: 048
  5. SPIRONOLACTONE [Concomitant]
     Dosage: 50 MG
     Route: 048
  6. TROXERUTIN [Concomitant]
     Dosage: 600 MG

REACTIONS (2)
  - GENERALISED OEDEMA [None]
  - MOBILITY DECREASED [None]
